FAERS Safety Report 23717169 (Version 2)
Quarter: 2025Q2

REPORT INFORMATION
  Report Type: Spontaneous
  Country: TR (occurrence: TR)
  Receive Date: 20240408
  Receipt Date: 20250425
  Transmission Date: 20250716
  Serious: Yes (Death, Life-Threatening)
  Sender: OCTAPHARMA
  Company Number: TR-OCTA-ALB05424

PATIENT
  Age: 9 Year
  Sex: Male
  Weight: 32 kg

DRUGS (3)
  1. ALBUMIN HUMAN [Suspect]
     Active Substance: ALBUMIN HUMAN
     Indication: Hypoalbuminaemia
     Route: 042
     Dates: start: 20240318, end: 20240318
  2. Prednol [Concomitant]
     Indication: Product used for unknown indication
     Route: 042
  3. PHENIRAMINE [Concomitant]
     Active Substance: PHENIRAMINE
     Indication: Product used for unknown indication
     Route: 042

REACTIONS (5)
  - Cardiac arrest [Fatal]
  - Erythema [Not Recovered/Not Resolved]
  - Erythema [Not Recovered/Not Resolved]
  - Pyrexia [Recovered/Resolved]
  - Dyspnoea [Unknown]

NARRATIVE: CASE EVENT DATE: 20240318
